FAERS Safety Report 19229866 (Version 1)
Quarter: 2021Q2

REPORT INFORMATION
  Report Type: Spontaneous
  Country: IT (occurrence: IT)
  Receive Date: 20210506
  Receipt Date: 20210506
  Transmission Date: 20210717
  Serious: Yes (Other)
  Sender: FDA-Public Use
  Company Number: IT-ELI_LILLY_AND_COMPANY-IT202104011267

PATIENT
  Age: 76 Year
  Sex: Male

DRUGS (2)
  1. TAXOL [Suspect]
     Active Substance: PACLITAXEL
     Indication: METASTATIC GASTRIC CANCER
     Dosage: UNK, UNKNOWN
     Route: 065
     Dates: end: 20190925
  2. RAMUCIRUMAB [Suspect]
     Active Substance: RAMUCIRUMAB
     Indication: METASTATIC GASTRIC CANCER
     Dosage: UNK, UNKNOWN
     Route: 065
     Dates: end: 202102

REACTIONS (5)
  - Mucosal inflammation [Unknown]
  - Diarrhoea [Unknown]
  - Myelosuppression [Unknown]
  - Malignant neoplasm progression [Unknown]
  - Neurotoxicity [Unknown]

NARRATIVE: CASE EVENT DATE: 202103
